FAERS Safety Report 6241014-9 (Version None)
Quarter: 2009Q2

REPORT INFORMATION
  Report Type: 
  Country: None (occurrence: None)
  Receive Date: 20090623
  Receipt Date: 20090616
  Transmission Date: 20091009
  Serious: Yes (Hospitalization)
  Sender: FDA-Public Use
  Company Number: B0579772A

PATIENT
  Sex: Male

DRUGS (1)
  1. AUGMENTIN [Suspect]
     Indication: TOOTHACHE
     Dosage: 1G PER DAY
     Route: 048
     Dates: start: 20090606, end: 20090606

REACTIONS (4)
  - ERYTHEMA [None]
  - GENITAL ERYTHEMA [None]
  - PRURITUS [None]
  - PRURITUS GENITAL [None]
